FAERS Safety Report 13094327 (Version 2)
Quarter: 2017Q1

REPORT INFORMATION
  Report Type: Spontaneous
  Country: US (occurrence: US)
  Receive Date: 20170106
  Receipt Date: 20170315
  Transmission Date: 20170428
  Serious: No
  Sender: FDA-Public Use
  Company Number: US-PFIZER INC-2017004085

PATIENT
  Age: 56 Year
  Sex: Female

DRUGS (3)
  1. ESTRING [Suspect]
     Active Substance: ESTRADIOL
     Dosage: 1 DF, UNK (1 DOSE)
     Route: 067
     Dates: start: 20161226, end: 20161227
  2. LEXAPRO [Concomitant]
     Active Substance: ESCITALOPRAM OXALATE
     Dosage: 10 MG, 1X/DAY
     Route: 048
  3. ESTRING [Suspect]
     Active Substance: ESTRADIOL
     Indication: ATROPHIC VULVOVAGINITIS
     Dosage: 2 MG, UNK
     Route: 067
     Dates: start: 20161227

REACTIONS (2)
  - Muscle spasms [Recovered/Resolved]
  - Pain [Unknown]

NARRATIVE: CASE EVENT DATE: 20161227
